FAERS Safety Report 4363995-0 (Version None)
Quarter: 2004Q2

REPORT INFORMATION
  Report Type: 
  Country: None (occurrence: None)
  Receive Date: 20040520
  Receipt Date: 20040520
  Transmission Date: 20050107
  Serious: Yes (Other)
  Sender: FDA-Public Use
  Company Number: None

PATIENT
  Age: 33 Year
  Sex: Female
  Weight: 48.0813 kg

DRUGS (2)
  1. ZOLOFT [Suspect]
     Indication: ANXIETY
     Dosage: 50 MG EVERY DAY ORAL
     Route: 048
     Dates: start: 20030918, end: 20040305
  2. ZOLOFT [Suspect]
     Indication: DEPRESSION
     Dosage: 50 MG EVERY DAY ORAL
     Route: 048
     Dates: start: 20030918, end: 20040305

REACTIONS (1)
  - WEIGHT DECREASED [None]
